FAERS Safety Report 9784960 (Version 3)
Quarter: 2014Q1

REPORT INFORMATION
  Report Type: Spontaneous
  Country: JP (occurrence: JP)
  Receive Date: 20131227
  Receipt Date: 20140119
  Transmission Date: 20141002
  Serious: Yes (Hospitalization)
  Sender: FDA-Public Use
  Company Number: JP-BRISTOL-MYERS SQUIBB COMPANY-19934397

PATIENT
  Age: 72 Year
  Sex: Female

DRUGS (8)
  1. ABILIFY TABS [Suspect]
     Indication: BIPOLAR I DISORDER
     Dosage: 02OCT13-12NOV13:42DAYS:12MG?13NOV-03DEC13:21DAYS:6MG?04DEC-10DEC13:7DAYS:3MG
     Route: 048
     Dates: start: 20130406, end: 20131210
  2. RAMELTEON [Concomitant]
     Dosage: 02OCT13
     Dates: start: 20130406
  3. LAMOTRIGINE [Concomitant]
     Dosage: 02OCT13
     Dates: start: 20130406
  4. OMEGA-3-ACID ETHYL ESTERS [Concomitant]
     Dosage: CAPS
     Dates: start: 20130406
  5. OXYBUTYNIN HCL [Concomitant]
     Dosage: TABS?02OCT13
     Dates: start: 20130406
  6. DIAZEPAM [Concomitant]
     Dates: start: 20131111
  7. LEXAPRO [Concomitant]
     Dosage: TABS
     Dates: start: 20131113, end: 20131119
  8. MAGLAX [Concomitant]
     Dates: start: 20130406

REACTIONS (6)
  - Palpitations [Recovering/Resolving]
  - Hot flush [Recovering/Resolving]
  - Tremor [Recovering/Resolving]
  - Bradykinesia [Recovering/Resolving]
  - Parkinsonian gait [Recovered/Resolved]
  - Fall [Recovered/Resolved]
